FAERS Safety Report 24755356 (Version 1)
Quarter: 2024Q4

REPORT INFORMATION
  Report Type: Spontaneous
  Country: US (occurrence: US)
  Receive Date: 20241219
  Receipt Date: 20241219
  Transmission Date: 20250115
  Serious: No
  Sender: BIOGEN
  Company Number: US-BIOGEN-2024BI01294158

PATIENT
  Age: 34 Year
  Sex: Female

DRUGS (1)
  1. ZURZUVAE [Suspect]
     Active Substance: ZURANOLONE
     Indication: Perinatal depression
     Route: 050
     Dates: start: 20241213

REACTIONS (4)
  - Paraesthesia [Unknown]
  - Somnolence [Unknown]
  - Sedation [Unknown]
  - Dizziness postural [Unknown]

NARRATIVE: CASE EVENT DATE: 20241213
